FAERS Safety Report 5096696-4 (Version None)
Quarter: 2006Q3

REPORT INFORMATION
  Report Type: 
  Country: None (occurrence: None)
  Receive Date: 20060831
  Receipt Date: 20060823
  Transmission Date: 20061208
  Serious: Yes (Death, Other)
  Sender: FDA-Public Use
  Company Number: 2006-BP-09810RO

PATIENT

DRUGS (3)
  1. METHOTREXATE [Suspect]
     Indication: RHEUMATOID ARTHRITIS
     Dosage: SEE TEXT
  2. NSAIDS (NSAID'S) [Concomitant]
  3. PREDNISOLONE [Concomitant]

REACTIONS (7)
  - BETA 2 MICROGLOBULIN INCREASED [None]
  - C-REACTIVE PROTEIN INCREASED [None]
  - HYPOXIA [None]
  - LUNG INJURY [None]
  - LYMPHOCYTE COUNT DECREASED [None]
  - PYREXIA [None]
  - RESPIRATORY DISTRESS [None]
